FAERS Safety Report 17438582 (Version 1)
Quarter: 2020Q1

REPORT INFORMATION
  Report Type: Spontaneous
  Country: AU (occurrence: AU)
  Receive Date: 20200220
  Receipt Date: 20200220
  Transmission Date: 20200409
  Serious: Yes (Hospitalization, Other)
  Sender: FDA-Public Use
  Company Number: AU-TAKEDA-2020TUS010197

PATIENT

DRUGS (1)
  1. ENTYVIO [Suspect]
     Active Substance: VEDOLIZUMAB
     Indication: COLITIS
     Dosage: UNK
     Route: 065

REACTIONS (4)
  - Therapy non-responder [Unknown]
  - Off label use [Unknown]
  - Intestinal stenosis [Unknown]
  - Fistula [Unknown]
